FAERS Safety Report 11071969 (Version 2)
Quarter: 2015Q2

REPORT INFORMATION
  Report Type: Spontaneous
  Country: JP (occurrence: JP)
  Receive Date: 20150428
  Receipt Date: 20150508
  Transmission Date: 20150821
  Serious: No
  Sender: FDA-Public Use
  Company Number: JP-APOTEX-2015AP008468

PATIENT
  Age: 32 Year
  Sex: Female

DRUGS (7)
  1. ALLEGRA [Concomitant]
     Active Substance: FEXOFENADINE HYDROCHLORIDE
     Indication: PRODUCT USED FOR UNKNOWN INDICATION
     Route: 065
  2. MEDICON                            /00048102/ [Suspect]
     Active Substance: DEXTROMETHORPHAN HYDROBROMIDE
     Indication: NASOPHARYNGITIS
     Route: 048
  3. DOMPERDONE [Concomitant]
     Indication: PRODUCT USED FOR UNKNOWN INDICATION
     Route: 065
  4. CRAVIT [Concomitant]
     Active Substance: LEVOFLOXACIN
     Indication: PRODUCT USED FOR UNKNOWN INDICATION
     Route: 065
  5. PAXIL CR [Suspect]
     Active Substance: PAROXETINE HYDROCHLORIDE
     Indication: DEPRESSION
     Dosage: 37.5 MG, UNK
     Route: 048
     Dates: start: 20140924
  6. SPIROPENT [Suspect]
     Active Substance: CLENBUTEROL HYDROCHLORIDE
     Indication: NASOPHARYNGITIS
     Route: 048
  7. CARBOCISTEINE [Concomitant]
     Active Substance: CARBOCYSTEINE
     Indication: PRODUCT USED FOR UNKNOWN INDICATION
     Route: 065

REACTIONS (1)
  - Tremor [Recovered/Resolved]

NARRATIVE: CASE EVENT DATE: 201411
